FAERS Safety Report 21518885 (Version 1)
Quarter: 2022Q4

REPORT INFORMATION
  Report Type: Spontaneous
  Country: JP (occurrence: JP)
  Receive Date: 20221028
  Receipt Date: 20221028
  Transmission Date: 20230112
  Serious: Yes (Hospitalization)
  Sender: FDA-Public Use
  Company Number: None

PATIENT
  Sex: Female

DRUGS (1)
  1. BONVIVA [Suspect]
     Active Substance: IBANDRONATE SODIUM
     Indication: Product used for unknown indication
     Dosage: THE PATIENT ADMINISTERED BONVIVA FOR NEARLY TWO YEARS
     Route: 042
     Dates: end: 202207

REACTIONS (2)
  - Compression fracture [Unknown]
  - Eczema [Unknown]
